FAERS Safety Report 22895136 (Version 5)
Quarter: 2025Q1

REPORT INFORMATION
  Report Type: Spontaneous
  Country: US (occurrence: US)
  Receive Date: 20230901
  Receipt Date: 20250103
  Transmission Date: 20250408
  Serious: Yes (Life-Threatening, Hospitalization, Other)
  Sender: UNITED THERAPEUTICS
  Company Number: US-UNITED THERAPEUTICS-UNT-2023-021973

PATIENT
  Sex: Female
  Weight: 56.689 kg

DRUGS (18)
  1. ORENITRAM [Suspect]
     Active Substance: TREPROSTINIL
     Indication: Pulmonary arterial hypertension
     Dosage: 9 MG, TID
     Dates: start: 20230801, end: 20230830
  2. ORENITRAM [Suspect]
     Active Substance: TREPROSTINIL
     Indication: Pulmonary arterial hypertension
  3. ORENITRAM [Suspect]
     Active Substance: TREPROSTINIL
     Indication: Pulmonary arterial hypertension
  4. ORENITRAM [Suspect]
     Active Substance: TREPROSTINIL
     Indication: Pulmonary arterial hypertension
  5. ORENITRAM [Suspect]
     Active Substance: TREPROSTINIL
     Indication: Pulmonary arterial hypertension
  6. TREPROSTINIL [Suspect]
     Active Substance: TREPROSTINIL
     Indication: Pulmonary arterial hypertension
     Route: 041
  7. TREPROSTINIL [Suspect]
     Active Substance: TREPROSTINIL
     Route: 041
  8. TREPROSTINIL [Suspect]
     Active Substance: TREPROSTINIL
     Route: 041
  9. TREPROSTINIL [Suspect]
     Active Substance: TREPROSTINIL
     Route: 041
  10. TREPROSTINIL [Suspect]
     Active Substance: TREPROSTINIL
     Route: 041
  11. TREPROSTINIL [Suspect]
     Active Substance: TREPROSTINIL
     Route: 041
  12. TADALAFIL [Concomitant]
     Active Substance: TADALAFIL
     Indication: Product used for unknown indication
  13. MINERALS\VITAMINS [Concomitant]
     Active Substance: MINERALS\VITAMINS
     Indication: Product used for unknown indication
  14. IRON [Concomitant]
     Active Substance: IRON
     Indication: Product used for unknown indication
  15. PREDNISONE [Concomitant]
     Active Substance: PREDNISONE
     Indication: Product used for unknown indication
  16. TACROLIMUS [Concomitant]
     Active Substance: TACROLIMUS
     Indication: Product used for unknown indication
  17. ASPIRIN [Concomitant]
     Active Substance: ASPIRIN
     Indication: Product used for unknown indication
  18. VITAMIN B [Concomitant]
     Active Substance: VITAMIN B
     Indication: Product used for unknown indication

REACTIONS (19)
  - Cardiac arrest [Recovering/Resolving]
  - Nausea [Recovering/Resolving]
  - Flatulence [Unknown]
  - Headache [Recovering/Resolving]
  - Diarrhoea [Recovering/Resolving]
  - Vomiting [Recovering/Resolving]
  - Pain [Unknown]
  - Chills [Unknown]
  - Decreased appetite [Unknown]
  - Localised oedema [Unknown]
  - Abdominal discomfort [Unknown]
  - Condition aggravated [Unknown]
  - Abdominal pain [Unknown]
  - Palpitations [Recovered/Resolved]
  - Insomnia [Recovering/Resolving]
  - Fatigue [Unknown]
  - Feeling abnormal [Recovering/Resolving]
  - Asthenia [Unknown]
  - Heart rate increased [Recovered/Resolved]

NARRATIVE: CASE EVENT DATE: 20230101
